FAERS Safety Report 7786469-3 (Version None)
Quarter: 2011Q3

REPORT INFORMATION
  Report Type: 
  Country: None (occurrence: None)
  Receive Date: 20110928
  Receipt Date: 20110928
  Transmission Date: 20111222
  Serious: No
  Sender: FDA-Public Use
  Company Number: None

PATIENT
  Age: 69 Year
  Sex: Male
  Weight: 102.6 kg

DRUGS (1)
  1. DABIGATRAN [Suspect]
     Indication: HAEMATURIA
     Dosage: 150 MG BID PO
     Route: 048
     Dates: start: 20110526, end: 20110527

REACTIONS (1)
  - HAEMATURIA [None]
